FAERS Safety Report 6591655-4 (Version None)
Quarter: 2010Q1

REPORT INFORMATION
  Report Type: 
  Country: None (occurrence: None)
  Receive Date: 20100221
  Receipt Date: 20090916
  Transmission Date: 20100710
  Serious: No
  Sender: FDA-Public Use
  Company Number: US-ALLERGAN-0911271US

PATIENT
  Age: 40 Year
  Sex: Male

DRUGS (2)
  1. BOTOX COSMETIC [Suspect]
     Indication: SKIN WRINKLING
     Dosage: 42 UNITS, SINGLE
     Route: 030
     Dates: start: 20090724, end: 20090724
  2. TESTOSTERONE [Concomitant]

REACTIONS (2)
  - DRUG INTERACTION [None]
  - FACIAL PARESIS [None]
